FAERS Safety Report 22699500 (Version 2)
Quarter: 2024Q1

REPORT INFORMATION
  Report Type: Spontaneous
  Country: US (occurrence: US)
  Receive Date: 20230713
  Receipt Date: 20240207
  Transmission Date: 20240410
  Serious: Yes (Hospitalization, Other)
  Sender: FDA-Public Use
  Company Number: US-AMGEN-USASP2023119633

PATIENT
  Age: 24 Year
  Sex: Female

DRUGS (3)
  1. RITUXIMAB [Suspect]
     Active Substance: RITUXIMAB
     Indication: Encephalitis autoimmune
     Dosage: UNK
     Route: 065
  2. AMANTADINE [Concomitant]
     Active Substance: AMANTADINE
     Indication: Encephalitis autoimmune
     Dosage: UNK
     Route: 065
  3. BROMOCRIPTINE [Concomitant]
     Active Substance: BROMOCRIPTINE
     Indication: Encephalitis autoimmune
     Dosage: UNK
     Route: 065

REACTIONS (4)
  - Malignant catatonia [Recovering/Resolving]
  - Autonomic nervous system imbalance [Recovering/Resolving]
  - Neuroleptic malignant syndrome [Recovering/Resolving]
  - Off label use [Unknown]
